FAERS Safety Report 19841291 (Version 4)
Quarter: 2022Q1

REPORT INFORMATION
  Report Type: Spontaneous
  Country: US (occurrence: US)
  Receive Date: 20210916
  Receipt Date: 20220204
  Transmission Date: 20220423
  Serious: No
  Sender: FDA-Public Use
  Company Number: US-BIOVITRUM-2020US4135

PATIENT
  Age: 56 Year
  Sex: Male

DRUGS (3)
  1. KINERET [Suspect]
     Active Substance: ANAKINRA
     Indication: Monoclonal gammopathy
     Route: 058
     Dates: start: 20190502
  2. KINERET [Suspect]
     Active Substance: ANAKINRA
     Route: 058
     Dates: start: 20190408
  3. KINERET [Suspect]
     Active Substance: ANAKINRA
     Route: 058
     Dates: start: 20190404

REACTIONS (29)
  - Sinusitis [Unknown]
  - Contusion [Unknown]
  - Migraine [Unknown]
  - Abdominal distension [Unknown]
  - Blood triglycerides increased [Unknown]
  - Sinus disorder [Unknown]
  - Anosmia [Unknown]
  - Central obesity [Unknown]
  - Influenza like illness [Unknown]
  - Pyrexia [Unknown]
  - Fatigue [Unknown]
  - Malaise [Unknown]
  - Sleep disorder [Unknown]
  - Irritability [Unknown]
  - Scab [Unknown]
  - Hyperkeratosis [Unknown]
  - Pain [Unknown]
  - Gastrointestinal disorder [Unknown]
  - Monoclonal gammopathy [Unknown]
  - Condition aggravated [Unknown]
  - Gastritis [Unknown]
  - Gastrointestinal pain [Unknown]
  - Haematuria [Unknown]
  - Unevaluable event [Unknown]
  - Infection [Unknown]
  - Periodontal disease [Unknown]
  - Headache [Unknown]
  - Injection site reaction [Unknown]
  - Off label use [Unknown]

NARRATIVE: CASE EVENT DATE: 20190404
